FAERS Safety Report 6594089-1 (Version None)
Quarter: 2010Q1

REPORT INFORMATION
  Report Type: 
  Country: None (occurrence: None)
  Receive Date: 20100222
  Receipt Date: 20100210
  Transmission Date: 20100710
  Serious: Yes (Other)
  Sender: FDA-Public Use
  Company Number: SE-ROCHE-655069

PATIENT
  Sex: Female

DRUGS (4)
  1. PEG-INTERFERON ALFA 2A (RO 25-8310) [Suspect]
     Indication: HEPATITIS C
     Route: 058
     Dates: start: 20090224
  2. RIBAVIRIN [Suspect]
     Indication: HEPATITIS C
     Route: 048
     Dates: start: 20090224
  3. RIBAVIRIN [Suspect]
     Dosage: LOWERED DOSAGE
     Route: 048
     Dates: start: 20090317
  4. RIBAVIRIN [Suspect]
     Dosage: LOWERED DOSAGE
     Route: 048
     Dates: start: 20090427

REACTIONS (2)
  - ANAEMIA [None]
  - SYNCOPE [None]
